FAERS Safety Report 11890214 (Version 1)
Quarter: 2016Q1

REPORT INFORMATION
  Report Type: Spontaneous
  Country: US (occurrence: US)
  Receive Date: 20160105
  Receipt Date: 20160105
  Transmission Date: 20160526
  Serious: Yes (Hospitalization)
  Sender: FDA-Public Use
  Company Number: US-TEVA-622446USA

PATIENT
  Age: 5 Decade
  Sex: Female

DRUGS (1)
  1. NORTRIPTYLINE [Suspect]
     Active Substance: NORTRIPTYLINE
     Indication: DEPRESSION
     Route: 065

REACTIONS (4)
  - Brugada syndrome [Recovered/Resolved]
  - Unmasking of previously unidentified disease [Recovered/Resolved]
  - Syncope [Recovered/Resolved]
  - Ventricular tachyarrhythmia [Recovered/Resolved]
